FAERS Safety Report 12457698 (Version 1)
Quarter: 2016Q2

REPORT INFORMATION
  Report Type: Spontaneous
  Country: TR (occurrence: TR)
  Receive Date: 20160611
  Receipt Date: 20160611
  Transmission Date: 20160815
  Serious: Yes (Death, Hospitalization)
  Sender: FDA-Public Use
  Company Number: PHHY2016TR079729

PATIENT
  Age: 80 Year
  Sex: Male

DRUGS (3)
  1. THROMBOREDUCTIN [Concomitant]
     Indication: PRODUCT USED FOR UNKNOWN INDICATION
     Dosage: 0.5 MG, UNK
     Route: 065
     Dates: start: 20150714
  2. EXJADE [Suspect]
     Active Substance: DEFERASIROX
     Indication: IRON OVERLOAD
     Dosage: 125 MG, UNK
     Route: 048
     Dates: start: 20150410
  3. CEFTRIAXONE. [Concomitant]
     Active Substance: CEFTRIAXONE
     Indication: PRODUCT USED FOR UNKNOWN INDICATION
     Dosage: UNK
     Route: 065
     Dates: start: 20151026

REACTIONS (2)
  - Hyperpyrexia [Unknown]
  - Death [Fatal]

NARRATIVE: CASE EVENT DATE: 20151029
